FAERS Safety Report 25990680 (Version 1)
Quarter: 2025Q4

REPORT INFORMATION
  Report Type: Spontaneous
  Country: US (occurrence: US)
  Receive Date: 20251103
  Receipt Date: 20251103
  Transmission Date: 20260118
  Serious: No
  Sender: DR REDDYS
  Company Number: US-DRL-USA-USA/2025/10/015916

PATIENT

DRUGS (2)
  1. ACCUTANE [Suspect]
     Active Substance: ISOTRETINOIN
     Indication: Product used for unknown indication
     Dosage: NDC: 72143-0252-30
  2. ACCUTANE [Suspect]
     Active Substance: ISOTRETINOIN
     Dosage: NDC: 72143-0253-30

REACTIONS (1)
  - Adverse drug reaction [Unknown]
